APPROVED DRUG PRODUCT: GEMCITABINE HYDROCHLORIDE
Active Ingredient: GEMCITABINE HYDROCHLORIDE
Strength: EQ 200MG BASE/VIAL
Dosage Form/Route: INJECTABLE;INJECTION
Application: A077983 | Product #002
Applicant: TEVA PHARMACEUTICALS USA
Approved: Jan 25, 2011 | RLD: No | RS: No | Type: DISCN